FAERS Safety Report 9263385 (Version 1)
Quarter: 2013Q2

REPORT INFORMATION
  Report Type: Spontaneous
  Country: US (occurrence: US)
  Receive Date: 20130430
  Receipt Date: 20130430
  Transmission Date: 20140414
  Serious: No
  Sender: FDA-Public Use
  Company Number: US-ABBOTT-12P-163-0933206-00

PATIENT
  Sex: Male
  Weight: 79.45 kg

DRUGS (2)
  1. CREON [Suspect]
     Indication: PANCREATIC INSUFFICIENCY
  2. ACTONEL [Concomitant]
     Indication: BONE DISORDER

REACTIONS (1)
  - Constipation [Not Recovered/Not Resolved]
